FAERS Safety Report 9646259 (Version 2)
Quarter: 2013Q4

REPORT INFORMATION
  Report Type: Report from Study
  Country: IT (occurrence: IT)
  Receive Date: 20131025
  Receipt Date: 20131025
  Transmission Date: 20140711
  Serious: Yes (Death, Hospitalization)
  Sender: FDA-Public Use
  Company Number: IT-B.I. PHARMACEUTICALS,INC./RIDGEFIELD-2013-BI-17671BI

PATIENT
  Age: 61 Year
  Sex: Male
  Weight: 66 kg

DRUGS (7)
  1. BIBW 2992 [Suspect]
     Indication: SQUAMOUS CELL CARCINOMA OF LUNG
     Dosage: 40 MG
     Route: 048
     Dates: start: 20130612, end: 20130822
  2. SUPRADYN [Concomitant]
     Indication: TONGUE EXFOLIATION
     Route: 048
     Dates: start: 20130809
  3. ENTEROLACTIS PLUS [Concomitant]
     Indication: DIARRHOEA
     Route: 048
     Dates: start: 20130809
  4. LEOTUSS [Concomitant]
     Indication: COUGH
     Dosage: TOTAL DAILY DOSE: 40 DROPS
     Route: 048
     Dates: start: 20130809
  5. MEDROL [Concomitant]
     Indication: DYSPNOEA EXERTIONAL
     Dosage: 16 MG
     Route: 048
     Dates: start: 20130819
  6. IMODIUM [Concomitant]
     Indication: DIARRHOEA
     Dosage: 2 MG
     Route: 048
     Dates: start: 201307
  7. RANIDIL [Concomitant]
     Indication: PROPHYLAXIS AGAINST GASTROINTESTINAL ULCER
     Dosage: 300 MG
     Route: 048
     Dates: start: 20130612

REACTIONS (5)
  - Respiratory failure [Fatal]
  - Haemoptysis [Unknown]
  - Decreased appetite [Unknown]
  - Abdominal pain upper [Recovered/Resolved]
  - Diarrhoea [Unknown]
